FAERS Safety Report 8288837-2 (Version None)
Quarter: 2012Q2

REPORT INFORMATION
  Report Type: 
  Country: None (occurrence: None)
  Receive Date: 20120417
  Receipt Date: 20090903
  Transmission Date: 20120825
  Serious: No
  Sender: FDA-Public Use
  Company Number: 2009BI028731

PATIENT
  Age: 59 Year
  Sex: Female

DRUGS (4)
  1. TYSABRI [Suspect]
     Indication: MULTIPLE SCLEROSIS
     Route: 042
     Dates: start: 20090721
  2. AVONEX [Concomitant]
     Indication: MULTIPLE SCLEROSIS
     Route: 030
  3. AMPYRA [Concomitant]
     Dates: start: 20101202
  4. AVONEX [Concomitant]
     Route: 030

REACTIONS (5)
  - ASTHENIA [None]
  - DYSPHONIA [None]
  - FALL [None]
  - COORDINATION ABNORMAL [None]
  - FATIGUE [None]
